FAERS Safety Report 5402739-8 (Version None)
Quarter: 2007Q3

REPORT INFORMATION
  Report Type: 
  Country: None (occurrence: None)
  Receive Date: 20070730
  Receipt Date: 20070730
  Transmission Date: 20080115
  Serious: Yes (Hospitalization)
  Sender: FDA-Public Use
  Company Number: None

PATIENT
  Sex: Male
  Weight: 78.9259 kg

DRUGS (2)
  1. IMATINIB MESYLATE [Suspect]
     Indication: PROSTATE CANCER
     Dosage: 400MG  DAILY  PO  (DAILY X 10 EVERY 3 WEEKS)
     Route: 048
     Dates: start: 20070514, end: 20070725
  2. TAXOTERE [Suspect]
     Indication: PROSTATE CANCER
     Dosage: 60 MG/M2  Q 3 WEEKS  IV DRIP
     Route: 041
     Dates: start: 20070517, end: 20070719

REACTIONS (3)
  - ASTHENIA [None]
  - HYPOCALCAEMIA [None]
  - HYPOKALAEMIA [None]
